FAERS Safety Report 15802789 (Version 1)
Quarter: 2019Q1

REPORT INFORMATION
  Report Type: Report from Study
  Country: None (occurrence: US)
  Receive Date: 20190109
  Receipt Date: 20190109
  Transmission Date: 20190417
  Serious: Yes (Other)
  Sender: FDA-Public Use
  Company Number: US-ABBVIE-19S-163-2613259-00

PATIENT
  Age: 77 Year
  Sex: Male

DRUGS (1)
  1. ANDROGEL [Suspect]
     Active Substance: TESTOSTERONE
     Indication: PRODUCT USED FOR UNKNOWN INDICATION
     Route: 061

REACTIONS (6)
  - Prostate cancer [Unknown]
  - Knee operation [Unknown]
  - Erectile dysfunction [Unknown]
  - Nocturia [Unknown]
  - Basal cell carcinoma [Unknown]
  - Hypogonadism [Unknown]

NARRATIVE: CASE EVENT DATE: 20151202
